FAERS Safety Report 24157130 (Version 1)
Quarter: 2024Q3

REPORT INFORMATION
  Report Type: Spontaneous
  Country: IT (occurrence: IT)
  Receive Date: 20240731
  Receipt Date: 20240731
  Transmission Date: 20241017
  Serious: Yes (Hospitalization, Other)
  Sender: HIKMA
  Company Number: IT-MLMSERVICE-20200527-2316355-1

PATIENT
  Age: 15 Year
  Sex: Male

DRUGS (8)
  1. BRENTUXIMAB VEDOTIN [Suspect]
     Active Substance: BRENTUXIMAB VEDOTIN
     Indication: Hodgkin^s disease nodular sclerosis stage IV
     Dosage: 1.8 MILLIGRAM/KILOGRAM, ON DAY ONE OF EACH CYCLE, RECEIVED TOTAL 4 CYCLES
     Route: 042
  2. BRENTUXIMAB VEDOTIN [Suspect]
     Active Substance: BRENTUXIMAB VEDOTIN
     Indication: Hodgkin^s disease
  3. CISPLATIN [Suspect]
     Active Substance: CISPLATIN
     Indication: Hodgkin^s disease recurrent
     Dosage: 100 MILLIGRAM/SQ. METER, CONTINUOUS IV ON DAY 1 (24H), RECEIVED TOTAL 4 CYCLES
     Route: 042
  4. CISPLATIN [Suspect]
     Active Substance: CISPLATIN
     Indication: Hodgkin^s disease nodular sclerosis stage IV
  5. CYTARABINE [Suspect]
     Active Substance: CYTARABINE
     Indication: Hodgkin^s disease recurrent
     Dosage: 2 GRAM PER SQUARE METRE, Q12H, 2 G/M2 Q12 H, 3H FOR EACH INFUSION, DAY 2, RECEIVED TOTAL 4 CYCLES
     Route: 065
  6. CYTARABINE [Suspect]
     Active Substance: CYTARABINE
     Indication: Hodgkin^s disease nodular sclerosis stage IV
  7. DEXAMETHASONE [Suspect]
     Active Substance: DEXAMETHASONE
     Indication: Hodgkin^s disease recurrent
     Dosage: 160 MILLIGRAM, 40 MG ORALLY OR I.V., D1-D4, 4 CYCLES
     Route: 065
  8. DEXAMETHASONE [Suspect]
     Active Substance: DEXAMETHASONE
     Indication: Hodgkin^s disease nodular sclerosis stage IV

REACTIONS (4)
  - Leukopenia [Unknown]
  - Alanine aminotransferase increased [Unknown]
  - Thrombocytopenia [Unknown]
  - Anaemia [Unknown]
